FAERS Safety Report 24039311 (Version 2)
Quarter: 2024Q3

REPORT INFORMATION
  Report Type: Report from Study
  Country: JP (occurrence: JP)
  Receive Date: 20240702
  Receipt Date: 20240815
  Transmission Date: 20241017
  Serious: Yes (Death, Other)
  Sender: AKEBIA THERAPEUTICS
  Company Number: JP-MTPC-MTPC2022-0031084

PATIENT

DRUGS (4)
  1. VADADUSTAT [Suspect]
     Active Substance: VADADUSTAT
     Indication: Nephrogenic anaemia
     Dosage: 300 MILLIGRAM, QD
     Route: 048
     Dates: start: 20220620, end: 20230221
  2. VADADUSTAT [Suspect]
     Active Substance: VADADUSTAT
     Dosage: 150 MILLIGRAM, QD
     Route: 048
     Dates: start: 20230222, end: 20231116
  3. DARBEPOETIN ALFA [Concomitant]
     Active Substance: DARBEPOETIN ALFA
     Indication: Nephrogenic anaemia
     Dosage: 40 MICROGRAM, 1/WEEK
     Route: 042
     Dates: end: 20220606
  4. FERRIC CITRATE ANHYDROUS [Concomitant]
     Active Substance: FERRIC CITRATE ANHYDROUS
     Indication: Iron deficiency
     Dosage: 500 MILLIGRAM, QD
     Route: 048
     Dates: start: 20220620

REACTIONS (2)
  - Septic shock [Fatal]
  - Pneumonia aspiration [Recovering/Resolving]

NARRATIVE: CASE EVENT DATE: 20221103
